FAERS Safety Report 7409106-6 (Version None)
Quarter: 2011Q2

REPORT INFORMATION
  Report Type: 
  Country: None (occurrence: None)
  Receive Date: 20110412
  Receipt Date: 20110405
  Transmission Date: 20111010
  Serious: Yes (Death, Other)
  Sender: FDA-Public Use
  Company Number: CA-ROCHE-741534

PATIENT
  Sex: Male
  Weight: 70 kg

DRUGS (7)
  1. VITAMIN D [Concomitant]
  2. BEVACIZUMAB [Suspect]
     Indication: GLIOBLASTOMA
     Dosage: FORM: INFUSION
     Route: 042
     Dates: start: 20100806, end: 20110117
  3. TEMODAL [Concomitant]
  4. BEVACIZUMAB [Suspect]
     Route: 042
  5. WELLBUTRIN [Concomitant]
  6. DILANTIN [Concomitant]
  7. MIRTAZAPINE [Concomitant]

REACTIONS (5)
  - DEATH [None]
  - HAEMOGLOBIN DECREASED [None]
  - PLATELET COUNT DECREASED [None]
  - WHITE BLOOD CELL COUNT DECREASED [None]
  - NEOPLASM [None]
